FAERS Safety Report 9472145 (Version 2)
Quarter: 2013Q3

REPORT INFORMATION
  Report Type: Spontaneous
  Country: US (occurrence: US)
  Receive Date: 20130823
  Receipt Date: 20130921
  Transmission Date: 20140515
  Serious: Yes (Disabling)
  Sender: FDA-Public Use
  Company Number: US-009507513-1308USA007032

PATIENT
  Sex: Male
  Weight: 92.52 kg

DRUGS (5)
  1. VICTRELIS [Suspect]
     Indication: CHRONIC HEPATITIS C
     Dosage: TAKE 4 CAPSULES EVERY 8 HOURS
     Route: 048
     Dates: start: 201305
  2. PEGASYS [Suspect]
     Indication: CHRONIC HEPATITIS C
     Dosage: 180 MCG PER WEEK
     Dates: start: 201305
  3. RIBASPHERE [Suspect]
     Indication: CHRONIC HEPATITIS C
     Dosage: 600 MG, BID
     Route: 048
     Dates: start: 201305, end: 2013
  4. RIBASPHERE [Suspect]
     Dosage: 1000 MG PER DAY
     Route: 048
     Dates: start: 2013
  5. PRINIVIL [Concomitant]
     Route: 048

REACTIONS (4)
  - Leukopenia [Unknown]
  - Neutropenia [Unknown]
  - Weight decreased [Unknown]
  - Dysgeusia [Unknown]
